FAERS Safety Report 7771947-3 (Version None)
Quarter: 2011Q3

REPORT INFORMATION
  Report Type: 
  Country: None (occurrence: None)
  Receive Date: 20110922
  Receipt Date: 20100217
  Transmission Date: 20111222
  Serious: No
  Sender: FDA-Public Use
  Company Number: US-ASTRAZENECA-2008UW27554

PATIENT
  Age: 49 Year
  Sex: Male
  Weight: 109.8 kg

DRUGS (6)
  1. SEROQUEL [Suspect]
     Indication: ANXIETY
     Route: 048
     Dates: start: 20030203, end: 20060204
  2. ZYPREXA [Concomitant]
  3. RISPERDAL [Concomitant]
  4. SEROQUEL [Suspect]
     Indication: DEPRESSION
     Route: 048
     Dates: start: 20030203, end: 20060204
  5. GEODON [Concomitant]
  6. SEROQUEL [Suspect]
     Indication: AFFECTIVE DISORDER
     Route: 048
     Dates: start: 20030203, end: 20060204

REACTIONS (3)
  - TYPE 2 DIABETES MELLITUS [None]
  - BIOPSY LIVER [None]
  - VISION BLURRED [None]
